FAERS Safety Report 7315944-0 (Version None)
Quarter: 2011Q1

REPORT INFORMATION
  Report Type: 
  Country: None (occurrence: None)
  Receive Date: 20110225
  Receipt Date: 20110218
  Transmission Date: 20110831
  Serious: Yes (Hospitalization)
  Sender: FDA-Public Use
  Company Number: PT-TEVA-268195ISR

PATIENT
  Age: 66 Year
  Sex: Female
  Weight: 60 kg

DRUGS (10)
  1. PROPRANOLOL [Concomitant]
  2. DEXAMETHASONE [Concomitant]
  3. CLEMASTINE FUMARATE [Concomitant]
  4. LEVOTHYROXINE SODIUM [Concomitant]
     Indication: HYPOTHYROIDISM
  5. GRANISETRON HCL [Concomitant]
  6. ALPRAZOLAM [Concomitant]
  7. CARBOPLATIN [Suspect]
     Indication: PSEUDOMYXOMA PERITONEI
     Dosage: 300MG PER CHEMOTHERAPY CYCLE
     Route: 042
     Dates: start: 20101227
  8. CO-DIOVAN [Concomitant]
  9. PACLITAXEL [Suspect]
     Indication: PSEUDOMYXOMA PERITONEI
     Dosage: 160MG PER CHEMOTHERAPY CYCLE
     Route: 042
     Dates: start: 20101227
  10. TRIMETAZIDINE [Concomitant]

REACTIONS (1)
  - ARTERIAL THROMBOSIS LIMB [None]
